FAERS Safety Report 5322034-5 (Version None)
Quarter: 2007Q2

REPORT INFORMATION
  Report Type: 
  Country: None (occurrence: None)
  Receive Date: 20070508
  Receipt Date: 20070508
  Transmission Date: 20071010
  Serious: Yes (Other)
  Sender: FDA-Public Use
  Company Number: None

PATIENT
  Age: 40 Year
  Sex: Male
  Weight: 95.2554 kg

DRUGS (1)
  1. LEXAPRO [Suspect]
     Indication: DEPRESSION
     Dosage: 10 MG  DAILY  PO
     Route: 048
     Dates: start: 20031118, end: 20040318

REACTIONS (2)
  - EMOTIONAL DISORDER [None]
  - WEIGHT INCREASED [None]
